FAERS Safety Report 6194808-2 (Version None)
Quarter: 2009Q2

REPORT INFORMATION
  Report Type: 
  Country: None (occurrence: None)
  Receive Date: 20090519
  Receipt Date: 20070906
  Transmission Date: 20091009
  Serious: Yes (Hospitalization, Other)
  Sender: FDA-Public Use
  Company Number: US-ASTRAZENECA-2006UW24243

PATIENT
  Age: 37 Year
  Sex: Female
  Weight: 101.2 kg

DRUGS (42)
  1. SEROQUEL [Suspect]
     Indication: DEPRESSION
     Route: 048
     Dates: start: 20020101, end: 20040101
  2. SEROQUEL [Suspect]
     Indication: SLEEP DISORDER
     Route: 048
     Dates: start: 20020101, end: 20040101
  3. SEROQUEL [Suspect]
     Dosage: 25 MG TO 150 MG
     Route: 048
     Dates: start: 20030813
  4. SEROQUEL [Suspect]
     Dosage: 25 MG TO 150 MG
     Route: 048
     Dates: start: 20030813
  5. KLONOPIN [Concomitant]
     Route: 065
     Dates: start: 20030101
  6. PROTONIX [Concomitant]
     Route: 048
  7. ADVAIR DISKUS 100/50 [Concomitant]
     Route: 065
  8. LEXAPRO [Concomitant]
     Route: 048
  9. LEVAQUIN [Concomitant]
     Route: 042
  10. DEMEROL [Concomitant]
     Route: 042
  11. IMITREX [Concomitant]
     Route: 065
  12. ALBUTEROL [Concomitant]
     Route: 045
  13. SOLU-MEDROL [Concomitant]
     Route: 048
  14. HUMALOG [Concomitant]
     Route: 065
  15. DOXYCYCLINE [Concomitant]
     Route: 065
  16. PYRIDIUM [Concomitant]
     Route: 065
  17. PRAVACHOL [Concomitant]
     Route: 065
  18. AVELOX [Concomitant]
     Route: 065
  19. SINGULAIR [Concomitant]
     Route: 065
  20. ZANTAC [Concomitant]
     Route: 048
  21. ACIPHEX [Concomitant]
     Route: 065
  22. FLOXIN [Concomitant]
     Route: 065
  23. KLONOPIN [Concomitant]
     Route: 065
  24. DEPAKOTE [Concomitant]
     Dosage: 250 TO 500 MG
     Route: 048
  25. IBUPROFEN [Concomitant]
     Route: 065
  26. PHENERGAN [Concomitant]
     Route: 042
  27. PERCOCET [Concomitant]
     Route: 065
  28. REGLAN [Concomitant]
     Route: 065
  29. IPRATROPIUM BROMIDE [Concomitant]
     Route: 045
  30. SYNTHROID [Concomitant]
     Route: 065
  31. ALLEGRA [Concomitant]
     Route: 065
  32. LEVBID [Concomitant]
     Dosage: TWO TIMES A DAY
     Route: 048
  33. HABITROL [Concomitant]
     Route: 062
  34. NOVOLIN R [Concomitant]
     Route: 058
  35. AVANDAMET [Concomitant]
     Dosage: TWO TIMES A DAY
     Route: 048
  36. GUAIFENEX [Concomitant]
     Route: 065
  37. MYCELEX [Concomitant]
     Route: 065
  38. TIZANIDINE HYDROCHLORIDE [Concomitant]
     Route: 065
  39. ULTRACET [Concomitant]
     Route: 065
  40. XENICAL [Concomitant]
     Route: 065
  41. MECLIZINE [Concomitant]
     Route: 065
  42. KEFLEX [Concomitant]
     Route: 065

REACTIONS (29)
  - ABDOMINAL PAIN [None]
  - ARTHRALGIA [None]
  - ASTHMA [None]
  - BACK PAIN [None]
  - BRONCHITIS [None]
  - CHEST DISCOMFORT [None]
  - CHEST PAIN [None]
  - CHOLECYSTITIS [None]
  - CHOLELITHIASIS [None]
  - CHRONIC OBSTRUCTIVE PULMONARY DISEASE [None]
  - CONVULSION [None]
  - COUGH [None]
  - DEHYDRATION [None]
  - DIABETES MELLITUS [None]
  - DIZZINESS [None]
  - DUODENITIS [None]
  - DYSPNOEA [None]
  - DYSURIA [None]
  - EYELID DISORDER [None]
  - HIATUS HERNIA [None]
  - JOINT INJURY [None]
  - NASAL CONGESTION [None]
  - NASOPHARYNGITIS [None]
  - NAUSEA [None]
  - OTITIS EXTERNA [None]
  - POSTURE ABNORMAL [None]
  - RASH [None]
  - SYNCOPE [None]
  - TEMPOROMANDIBULAR JOINT SYNDROME [None]
